FAERS Safety Report 24808461 (Version 1)
Quarter: 2025Q1

REPORT INFORMATION
  Report Type: Spontaneous
  Country: US (occurrence: US)
  Receive Date: 20250106
  Receipt Date: 20250106
  Transmission Date: 20250409
  Serious: No
  Sender: ALKEM
  Company Number: US-ALKEM LABORATORIES LIMITED-US-ALKEM-2024-05655

PATIENT

DRUGS (2)
  1. TACROLIMUS [Interacting]
     Active Substance: TACROLIMUS
     Indication: Product used for unknown indication
     Route: 065
  2. PHENOBARBITAL [Interacting]
     Active Substance: PHENOBARBITAL
     Indication: Seizure
     Route: 065

REACTIONS (2)
  - Drug level decreased [Unknown]
  - Drug interaction [Unknown]
